FAERS Safety Report 25008633 (Version 1)
Quarter: 2025Q1

REPORT INFORMATION
  Report Type: Report from Study
  Country: US (occurrence: US)
  Receive Date: 20250225
  Receipt Date: 20250225
  Transmission Date: 20250408
  Serious: Yes (Hospitalization)
  Sender: ROCHE
  Company Number: US-ROCHE-10000211516

PATIENT
  Age: 71 Year
  Sex: Female

DRUGS (2)
  1. RITUXAN [Suspect]
     Active Substance: RITUXIMAB
     Indication: Pulmonary vasculitis
     Route: 065
     Dates: start: 202410
  2. RITUXAN [Suspect]
     Active Substance: RITUXIMAB
     Indication: Neurogenic bowel

REACTIONS (2)
  - Influenza [Not Recovered/Not Resolved]
  - Off label use [Unknown]

NARRATIVE: CASE EVENT DATE: 20250216
